FAERS Safety Report 21950527 (Version 1)
Quarter: 2023Q1

REPORT INFORMATION
  Report Type: Spontaneous
  Country: US (occurrence: US)
  Receive Date: 20230203
  Receipt Date: 20230203
  Transmission Date: 20230417
  Serious: Yes (Death, Hospitalization)
  Sender: FDA-Public Use
  Company Number: US-JNJFOC-20230159364

PATIENT
  Age: 34 Year
  Sex: Male

DRUGS (2)
  1. IBUPROFEN [Suspect]
     Active Substance: IBUPROFEN
     Indication: Product used for unknown indication
     Route: 065
  2. MAGNESIUM [Suspect]
     Active Substance: MAGNESIUM
     Indication: Product used for unknown indication
     Route: 065

REACTIONS (7)
  - Completed suicide [Fatal]
  - Intentional overdose [Fatal]
  - Ileus [Fatal]
  - Intestinal ischaemia [Fatal]
  - Disseminated intravascular coagulation [Fatal]
  - Ecchymosis [Fatal]
  - Cardiac arrest [Fatal]
